FAERS Safety Report 7476227-1 (Version None)
Quarter: 2011Q2

REPORT INFORMATION
  Report Type: 
  Country: None (occurrence: None)
  Receive Date: 20110510
  Receipt Date: 20110510
  Transmission Date: 20111010
  Serious: Yes (Hospitalization)
  Sender: FDA-Public Use
  Company Number: None

PATIENT
  Age: 78 Year
  Sex: Male
  Weight: 61.4 kg

DRUGS (1)
  1. RECLAST [Suspect]
     Indication: OSTEOPOROSIS
     Dosage: INITIAL INFUSION
     Dates: start: 20110324

REACTIONS (2)
  - VENTRICULAR EXTRASYSTOLES [None]
  - LOSS OF CONSCIOUSNESS [None]
